FAERS Safety Report 4486334-3 (Version None)
Quarter: 2004Q4

REPORT INFORMATION
  Report Type: 
  Country: None (occurrence: None)
  Receive Date: 20041027
  Receipt Date: 20041015
  Transmission Date: 20050328
  Serious: Yes (Hospitalization, Other)
  Sender: FDA-Public Use
  Company Number: US-JNJFOC-20040404789

PATIENT
  Sex: Female
  Weight: 80.74 kg

DRUGS (21)
  1. REMICADE [Suspect]
     Route: 042
  2. REMICADE [Suspect]
     Dosage: EVERY 8 WEEKS
     Route: 042
  3. REMICADE [Suspect]
     Route: 042
  4. REMICADE [Suspect]
     Route: 042
  5. REMICADE [Suspect]
     Indication: CROHN'S DISEASE
     Route: 042
  6. CELEBREX [Concomitant]
  7. PRENATAL VITAMINS [Concomitant]
  8. PRENATAL VITAMINS [Concomitant]
  9. PRENATAL VITAMINS [Concomitant]
  10. PRENATAL VITAMINS [Concomitant]
  11. PRENATAL VITAMINS [Concomitant]
  12. PRENATAL VITAMINS [Concomitant]
  13. PRENATAL VITAMINS [Concomitant]
  14. PRENATAL VITAMINS [Concomitant]
  15. LOMOTIL [Concomitant]
  16. LOMOTIL [Concomitant]
  17. IMODIUM [Concomitant]
  18. PENTASA [Concomitant]
  19. NEURONTIN [Concomitant]
  20. TIZANIDINE HCL [Concomitant]
  21. DIAZEPAM [Concomitant]

REACTIONS (32)
  - ASTHENIA [None]
  - BACTERIAL INFECTION [None]
  - BLOOD POTASSIUM DECREASED [None]
  - CATHETER RELATED COMPLICATION [None]
  - CONDITION AGGRAVATED [None]
  - COORDINATION ABNORMAL [None]
  - CROHN'S DISEASE [None]
  - DISEASE RECURRENCE [None]
  - DRUG EXPOSURE DURING PREGNANCY [None]
  - ENTEROCOLITIS [None]
  - FALL [None]
  - GANGLION [None]
  - GASTROINTESTINAL INFECTION [None]
  - HYPOAESTHESIA [None]
  - ILEUS [None]
  - INTESTINAL OBSTRUCTION [None]
  - JOINT INJURY [None]
  - LIMB DISCOMFORT [None]
  - LOSS OF CONSCIOUSNESS [None]
  - MIGRAINE [None]
  - MUSCLE SPASMS [None]
  - NASAL CYST [None]
  - NEUROPATHY PERIPHERAL [None]
  - PAIN IN EXTREMITY [None]
  - PHARYNGEAL CYST [None]
  - PORPHYRIA [None]
  - PREGNANCY [None]
  - PRURITUS GENERALISED [None]
  - SMALL INTESTINAL OBSTRUCTION [None]
  - SMALL INTESTINAL STENOSIS [None]
  - VIRAL INFECTION [None]
  - VISUAL DISTURBANCE [None]
